FAERS Safety Report 19032638 (Version 1)
Quarter: 2021Q1

REPORT INFORMATION
  Report Type: Report from Study
  Country: CH (occurrence: CH)
  Receive Date: 20210319
  Receipt Date: 20210319
  Transmission Date: 20210420
  Serious: Yes (Other)
  Sender: FDA-Public Use
  Company Number: CH-JNJFOC-20210323201

PATIENT

DRUGS (6)
  1. BEDAQUILINE [Suspect]
     Active Substance: BEDAQUILINE
     Indication: TUBERCULOSIS
     Route: 048
  2. LEVOFLOXACIN. [Suspect]
     Active Substance: LEVOFLOXACIN
     Indication: TUBERCULOSIS
     Route: 065
  3. CLOFAZIMINE [Suspect]
     Active Substance: CLOFAZIMINE
     Indication: TUBERCULOSIS
     Route: 065
  4. LINEZOLID. [Suspect]
     Active Substance: LINEZOLID
     Indication: TUBERCULOSIS
     Route: 065
  5. DELAMANID [Suspect]
     Active Substance: DELAMANID
     Indication: TUBERCULOSIS
     Route: 065
  6. MOXIFLOXACIN. [Suspect]
     Active Substance: MOXIFLOXACIN
     Indication: TUBERCULOSIS
     Route: 065

REACTIONS (21)
  - Hepatotoxicity [Unknown]
  - Hyperbilirubinaemia [Unknown]
  - Acute hepatic failure [Unknown]
  - Cardiopulmonary failure [Unknown]
  - Cardiac failure [Unknown]
  - Respiratory failure [Unknown]
  - Hepatic failure [Unknown]
  - Hepatic enzyme increased [Unknown]
  - Gastroenteritis [Unknown]
  - Transaminases increased [Unknown]
  - Hepatitis [Unknown]
  - Hepatorenal syndrome [Unknown]
  - Electrocardiogram QT prolonged [Unknown]
  - Cardiac failure congestive [Unknown]
  - Hepatic cirrhosis [Unknown]
  - Pancytopenia [Unknown]
  - Cor pulmonale [Unknown]
  - Dyspnoea [Unknown]
  - Chronic hepatic failure [Unknown]
  - Drug-induced liver injury [Unknown]
  - Anaemia [Unknown]
